FAERS Safety Report 9746428 (Version 1)
Quarter: 2013Q4

REPORT INFORMATION
  Report Type: Spontaneous
  Country: IT (occurrence: None)
  Receive Date: 20131205
  Receipt Date: 20131205
  Transmission Date: 20140711
  Serious: No
  Sender: FDA-Public Use
  Company Number: 2013AP008884

PATIENT
  Age: 74 Year
  Sex: Female

DRUGS (2)
  1. DONEPEZIL HYDROCHLORIDE [Suspect]
     Indication: COGNITIVE DISORDER
     Route: 048
     Dates: start: 20130801, end: 20130803
  2. SERTRALINE HYDROCHLORIDE (SERTRALINE HYDROCHLORIDE) [Suspect]
     Indication: ANXIETY
     Route: 048
     Dates: start: 20130801, end: 20130803

REACTIONS (1)
  - Delusional disorder, persecutory type [None]
